FAERS Safety Report 5160027-1 (Version None)
Quarter: 2006Q4

REPORT INFORMATION
  Report Type: 
  Country: None (occurrence: None)
  Receive Date: 20061129
  Receipt Date: 20060720
  Transmission Date: 20070319
  Serious: No
  Sender: FDA-Public Use
  Company Number: US-GLAXOSMITHKLINE-A0612978A

PATIENT
  Age: 50 Year
  Sex: Female

DRUGS (6)
  1. WELLBUTRIN SR [Suspect]
     Indication: DEPRESSION
     Dosage: 150MG SINGLE DOSE
     Route: 048
     Dates: start: 20040302, end: 20040302
  2. PROCARDIA [Concomitant]
  3. PLAVIX [Concomitant]
  4. UNKNOWN MEDICATION [Concomitant]
  5. PERCOCET [Concomitant]
  6. OXYCONTIN [Concomitant]

REACTIONS (3)
  - DRUG INTERACTION [None]
  - FEELING ABNORMAL [None]
  - VISUAL DISTURBANCE [None]
